FAERS Safety Report 25096003 (Version 1)
Quarter: 2025Q1

REPORT INFORMATION
  Report Type: Spontaneous
  Country: FR (occurrence: FR)
  Receive Date: 20250319
  Receipt Date: 20250319
  Transmission Date: 20250409
  Serious: Yes (Hospitalization)
  Sender: PFIZER
  Company Number: None

PATIENT
  Age: 61 Year
  Sex: Female
  Weight: 50 kg

DRUGS (15)
  1. PIPERACILLIN SODIUM\TAZOBACTAM SODIUM [Suspect]
     Active Substance: PIPERACILLIN SODIUM\TAZOBACTAM SODIUM
     Indication: Septic shock
     Dosage: 16 G, 1X/DAY
     Route: 042
     Dates: start: 20250129, end: 20250216
  2. CEFTRIAXONE [Concomitant]
     Active Substance: CEFTRIAXONE
     Indication: Septic shock
     Route: 042
     Dates: start: 20250129, end: 20250129
  3. METRONIDAZOLE [Concomitant]
     Active Substance: METRONIDAZOLE
     Indication: Septic shock
     Route: 042
     Dates: start: 20250129, end: 20250129
  4. AMIKACIN [Concomitant]
     Active Substance: AMIKACIN
     Indication: Septic shock
     Route: 042
     Dates: start: 20250129, end: 20250202
  5. NOREPINEPHRINE BITARTRATE [Concomitant]
     Active Substance: NOREPINEPHRINE BITARTRATE
     Indication: Septic shock
     Route: 042
     Dates: start: 20250129, end: 20250203
  6. LINEZOLID [Concomitant]
     Active Substance: LINEZOLID
     Indication: Septic shock
     Route: 042
     Dates: start: 20250131, end: 20250202
  7. MICAFUNGIN [Concomitant]
     Active Substance: MICAFUNGIN SODIUM
     Indication: Septic shock
     Route: 042
     Dates: start: 20250131, end: 20250202
  8. LEVOTHYROXINE SODIUM [Concomitant]
     Active Substance: LEVOTHYROXINE SODIUM
     Indication: Thyroidectomy
     Dosage: 200 UG, 1X/DAY
     Route: 048
  9. RIFAXIMIN [Concomitant]
     Active Substance: RIFAXIMIN
     Indication: Liver disorder
     Route: 048
  10. FUROSEMIDE [Concomitant]
     Active Substance: FUROSEMIDE
     Dosage: 60 MG, 1X/DAY
     Route: 048
  11. LACTULOSE [Concomitant]
     Active Substance: LACTULOSE
     Route: 048
  12. COLCHICINE [Concomitant]
     Active Substance: COLCHICINE
     Route: 048
  13. LANSOPRAZOLE [Concomitant]
     Active Substance: LANSOPRAZOLE
     Dosage: 30 MG, 1X/DAY
     Route: 048
  14. ALDACTONE [Concomitant]
     Active Substance: SPIRONOLACTONE
     Dosage: 75 MG, 1X/DAY
     Route: 048
  15. FENTANYL [Concomitant]
     Active Substance: FENTANYL
     Indication: Pain management
     Route: 062

REACTIONS (2)
  - Warm autoimmune haemolytic anaemia [Recovered/Resolved]
  - Off label use [Unknown]

NARRATIVE: CASE EVENT DATE: 20250129
